FAERS Safety Report 9854695 (Version 3)
Quarter: 2014Q1

REPORT INFORMATION
  Report Type: Spontaneous
  Country: ES (occurrence: ES)
  Receive Date: 20140130
  Receipt Date: 20140207
  Transmission Date: 20141002
  Serious: Yes (Disabling, Other)
  Sender: FDA-Public Use
  Company Number: ES-BEH-2014040255

PATIENT
  Age: 37 Year
  Sex: Female

DRUGS (1)
  1. RHOPHYLAC [Suspect]
     Indication: RHESUS INCOMPATIBILITY
     Dosage: PROPHYLACTIC DOSES AT WEEKS 28 AND FOLLOWING PARTURITION
     Route: 030
     Dates: start: 20110731, end: 20110731

REACTIONS (2)
  - Rhesus antibodies positive [Unknown]
  - Drug ineffective [Unknown]
